FAERS Safety Report 5123911-0 (Version None)
Quarter: 2006Q3

REPORT INFORMATION
  Report Type: 
  Country: None (occurrence: None)
  Receive Date: 20060811
  Receipt Date: 20060704
  Transmission Date: 20061208
  Serious: Yes (Hospitalization, Other)
  Sender: FDA-Public Use
  Company Number: 200615638US

PATIENT
  Age: 49 Year
  Sex: Female

DRUGS (7)
  1. APIDRA [Suspect]
     Indication: DIABETES MELLITUS INSULIN-DEPENDENT
     Dates: end: 20060701
  2. APIDRA [Suspect]
     Indication: DIABETES MELLITUS INSULIN-DEPENDENT
     Dates: end: 20060701
  3. HUMALOG [Suspect]
  4. SIROLIMUS (RAPAMUNE) [Concomitant]
  5. FOSAMAX [Concomitant]
  6. DIOVAN [Concomitant]
  7. FUROSEMIDE [Concomitant]

REACTIONS (3)
  - DEPRESSED LEVEL OF CONSCIOUSNESS [None]
  - HYPOGLYCAEMIA [None]
  - HYPOGLYCAEMIC COMA [None]
